FAERS Safety Report 9145688 (Version 2)
Quarter: 2014Q1

REPORT INFORMATION
  Report Type: Spontaneous
  Country: US (occurrence: US)
  Receive Date: 20130307
  Receipt Date: 20140103
  Transmission Date: 20141002
  Serious: Yes (Hospitalization, Other)
  Sender: FDA-Public Use
  Company Number: US-BRISTOL-MYERS SQUIBB COMPANY-17424557

PATIENT
  Age: 22 Year
  Sex: Female
  Weight: 99.77 kg

DRUGS (6)
  1. ABILIFY [Suspect]
     Indication: SCHIZOPHRENIA
     Dates: start: 201204
  2. HALDOL [Concomitant]
     Route: 048
  3. ATIVAN [Concomitant]
     Route: 048
  4. ATIVAN [Concomitant]
     Route: 048
  5. BENADRYL [Concomitant]
  6. INVEGA [Concomitant]
     Route: 048

REACTIONS (6)
  - Nervous system disorder [Unknown]
  - Visual impairment [Unknown]
  - Weight increased [Unknown]
  - Benign intracranial hypertension [Unknown]
  - Abdominal pain upper [Recovered/Resolved]
  - Urinary tract infection [Recovered/Resolved]
